FAERS Safety Report 8387927-3 (Version None)
Quarter: 2012Q2

REPORT INFORMATION
  Report Type: 
  Country: None (occurrence: None)
  Receive Date: 20120525
  Receipt Date: 20120516
  Transmission Date: 20120825
  Serious: Yes (Hospitalization, Other)
  Sender: FDA-Public Use
  Company Number: US-MERCK-1111USA03240

PATIENT
  Age: 63 Year
  Sex: Female
  Weight: 74 kg

DRUGS (3)
  1. CALCIUM (UNSPECIFIED) AND VITAMIN D (UNSPECIFIED) [Concomitant]
     Route: 048
  2. FOSAMAX [Suspect]
     Indication: OSTEOPOROSIS
     Route: 048
     Dates: start: 19900101, end: 20110201
  3. EVISTA [Concomitant]
     Indication: OSTEOPOROSIS
     Route: 048

REACTIONS (13)
  - FIBROCYSTIC BREAST DISEASE [None]
  - GOUT [None]
  - FALL [None]
  - CARDIAC MURMUR [None]
  - HYPOTHYROIDISM [None]
  - FEMUR FRACTURE [None]
  - GAIT DISTURBANCE [None]
  - CHRONIC OBSTRUCTIVE PULMONARY DISEASE [None]
  - HYPERTENSION [None]
  - LUNG NEOPLASM MALIGNANT [None]
  - MALIGNANT MELANOMA [None]
  - HYPERLIPIDAEMIA [None]
  - MENISCUS LESION [None]
